FAERS Safety Report 7499515-1 (Version None)
Quarter: 2011Q2

REPORT INFORMATION
  Report Type: 
  Country: None (occurrence: None)
  Receive Date: 20110524
  Receipt Date: 20110504
  Transmission Date: 20111010
  Serious: No
  Sender: FDA-Public Use
  Company Number: US-B.I. PHARMACEUTICALS,INC./RIDGEFIELD-2011-BP-07567BP

PATIENT
  Sex: Female

DRUGS (7)
  1. PRADAXA [Suspect]
     Indication: ATRIAL FIBRILLATION
     Dates: start: 20110120
  2. PRILOSEC [Concomitant]
     Dosage: 20 MG
  3. METFORMIN HCL [Concomitant]
     Dosage: 100 MG
  4. SIMVASTATIN [Concomitant]
     Dosage: 20 MG
  5. VERPAMIL HCL [Concomitant]
     Dosage: 480 MG
  6. LYRICA [Concomitant]
     Dosage: 50 MG
  7. ISOSORBIDE DINITRATE [Concomitant]
     Dosage: 120 MG

REACTIONS (1)
  - BURNING SENSATION [None]
